FAERS Safety Report 12824746 (Version 1)
Quarter: 2016Q4

REPORT INFORMATION
  Report Type: Report from Study
  Country: BR (occurrence: BR)
  Receive Date: 20161007
  Receipt Date: 20161007
  Transmission Date: 20170207
  Serious: Yes (Hospitalization)
  Sender: FDA-Public Use
  Company Number: BR-BIOGEN-2016BI00299111

PATIENT
  Age: 42 Year
  Sex: Female

DRUGS (2)
  1. SERTRALINE [Concomitant]
     Active Substance: SERTRALINE HYDROCHLORIDE
     Indication: PRODUCT USED FOR UNKNOWN INDICATION
     Dosage: AT NIGHT
     Route: 065
  2. AVONEX [Suspect]
     Active Substance: INTERFERON BETA-1A
     Indication: MULTIPLE SCLEROSIS
     Route: 030
     Dates: start: 201505, end: 201608

REACTIONS (5)
  - Musculoskeletal stiffness [Unknown]
  - Hypokinesia [Unknown]
  - Gait disturbance [Unknown]
  - Abasia [Unknown]
  - Balance disorder [Unknown]

NARRATIVE: CASE EVENT DATE: 201605
